FAERS Safety Report 8865140 (Version 1)
Quarter: 2012Q4

REPORT INFORMATION
  Report Type: 
  Country: US (occurrence: US)
  Receive Date: 20121024
  Receipt Date: 20121024
  Transmission Date: 20130627
  Serious: Yes (Other)
  Sender: FDA-Public Use
  Company Number: US-AMGEN-USASP2012001275

PATIENT
  Age: 67 Year
  Sex: Female

DRUGS (8)
  1. ENBREL [Suspect]
     Indication: PRODUCT USED FOR UNKNOWN INDICATION
     Dosage: 50 mg, qwk
     Dates: end: 20120103
  2. AMLODIPINE [Concomitant]
     Dosage: 10 mg, UNK
  3. METHOTREXATE [Concomitant]
     Dosage: 2.5 mg, UNK
  4. ATENOLOL [Concomitant]
     Dosage: 100 mg, UNK
  5. SULINDAC [Concomitant]
     Dosage: 200 mg, UNK
  6. FISH OIL [Concomitant]
     Dosage: UNK
  7. FOLIC ACID [Concomitant]
     Dosage: 20 mg, UNK
  8. MULTIVITAMINS [Concomitant]

REACTIONS (1)
  - Lymphoma [Unknown]
